FAERS Safety Report 19964590 (Version 2)
Quarter: 2021Q4

REPORT INFORMATION
  Report Type: Spontaneous
  Country: US (occurrence: US)
  Receive Date: 20211018
  Receipt Date: 20211020
  Transmission Date: 20220304
  Serious: Yes (Hospitalization)
  Sender: FDA-Public Use
  Company Number: 2021A772716

PATIENT
  Age: 90 Year
  Sex: Female
  Weight: 66.7 kg

DRUGS (2)
  1. CALQUENCE [Suspect]
     Active Substance: ACALABRUTINIB
     Indication: Mantle cell lymphoma
     Route: 048
     Dates: start: 20210924, end: 20211002
  2. LOXO -305 [Concomitant]

REACTIONS (3)
  - Fall [Not Recovered/Not Resolved]
  - Subdural haematoma [Unknown]
  - Hypertension [Unknown]

NARRATIVE: CASE EVENT DATE: 20211002
